FAERS Safety Report 26053100 (Version 1)
Quarter: 2025Q4

REPORT INFORMATION
  Report Type: Spontaneous
  Country: US (occurrence: None)
  Receive Date: 20251114
  Receipt Date: 20251114
  Transmission Date: 20260117
  Serious: Yes (Other)
  Sender: FDA-CTU
  Company Number: None

PATIENT
  Age: 41 Year
  Sex: Female
  Weight: 62.1 kg

DRUGS (4)
  1. KEPPRA [Suspect]
     Active Substance: LEVETIRACETAM
     Indication: Seizure prophylaxis
     Dates: start: 20250909, end: 20250925
  2. KEPPRA [Suspect]
     Active Substance: LEVETIRACETAM
     Indication: Craniotomy
  3. KEPPRA [Suspect]
     Active Substance: LEVETIRACETAM
     Indication: Postoperative care
  4. SYNTHROID [Concomitant]
     Active Substance: LEVOTHYROXINE SODIUM

REACTIONS (2)
  - Lymphadenopathy [None]
  - Dysphagia [None]

NARRATIVE: CASE EVENT DATE: 20250919
